FAERS Safety Report 13749550 (Version 1)
Quarter: 2017Q3

REPORT INFORMATION
  Report Type: Spontaneous
  Country: US (occurrence: US)
  Receive Date: 20170713
  Receipt Date: 20170713
  Transmission Date: 20171127
  Serious: No
  Sender: FDA-Public Use
  Company Number: None

PATIENT
  Age: 69 Year
  Sex: Male
  Weight: 105.7 kg

DRUGS (11)
  1. HYDROCHLOROTHIAZIDE. [Concomitant]
     Active Substance: HYDROCHLOROTHIAZIDE
  2. MERTAZAPINE [Concomitant]
     Active Substance: MIRTAZAPINE
  3. PROPRANOLOL [Concomitant]
     Active Substance: PROPRANOLOL HYDROCHLORIDE
  4. AMILORIDE [Concomitant]
     Active Substance: AMILORIDE
  5. AMLODIPINE BESYLATE. [Concomitant]
     Active Substance: AMLODIPINE BESYLATE
  6. ELIQUIS [Concomitant]
     Active Substance: APIXABAN
  7. POTASSIUM [Concomitant]
     Active Substance: POTASSIUM
  8. METHYLPREDNISOLONE, TABLETS,USP, [Suspect]
     Active Substance: METHYLPREDNISOLONE
     Indication: ABDOMINAL INFECTION
     Dosage: ?          OTHER STRENGTH:MG;QUANTITY:21 TABLET(S);?
     Route: 048
     Dates: start: 20170713, end: 20170713
  9. FINASTERIDE. [Concomitant]
     Active Substance: FINASTERIDE
  10. QUETIAPINE. [Concomitant]
     Active Substance: QUETIAPINE
  11. TAMSULOSIN [Concomitant]
     Active Substance: TAMSULOSIN

REACTIONS (1)
  - Anxiety [None]

NARRATIVE: CASE EVENT DATE: 20170713
